FAERS Safety Report 16903821 (Version 1)
Quarter: 2019Q4

REPORT INFORMATION
  Report Type: Report from Study
  Country: None (occurrence: US)
  Receive Date: 20191010
  Receipt Date: 20191010
  Transmission Date: 20200122
  Serious: Yes (Hospitalization, Other)
  Sender: FDA-Public Use
  Company Number: US-ABBVIE-19K-163-2953603-00

PATIENT
  Age: 57 Year
  Sex: Female
  Weight: 92.62 kg

DRUGS (2)
  1. CREON [Suspect]
     Active Substance: PANCRELIPASE AMYLASE\PANCRELIPASE LIPASE\PANCRELIPASE PROTEASE
     Indication: DYSPEPSIA
     Dosage: 2 CAPSULES WITH MEAL AND 1 CAPSULE WITH SNACK
     Route: 048
     Dates: start: 201903, end: 201906
  2. ZOFRAN [Concomitant]
     Active Substance: ONDANSETRON HYDROCHLORIDE
     Indication: NAUSEA

REACTIONS (10)
  - Feeding disorder [Recovering/Resolving]
  - Dizziness [Recovering/Resolving]
  - Intestinal obstruction [Recovering/Resolving]
  - Sepsis [Recovering/Resolving]
  - Pain [Recovering/Resolving]
  - Weight decreased [Recovering/Resolving]
  - Malaise [Recovering/Resolving]
  - Dehydration [Recovering/Resolving]
  - Impaired healing [Recovering/Resolving]
  - Vein collapse [Recovering/Resolving]

NARRATIVE: CASE EVENT DATE: 201904
